FAERS Safety Report 9927699 (Version 2)
Quarter: 2014Q2

REPORT INFORMATION
  Report Type: Spontaneous
  Country: AR (occurrence: AR)
  Receive Date: 20140227
  Receipt Date: 20140421
  Transmission Date: 20141212
  Serious: Yes (Hospitalization, Other)
  Sender: FDA-Public Use
  Company Number: AR-ROCHE-1354120

PATIENT
  Age: 53 Year
  Sex: Female
  Weight: 55 kg

DRUGS (3)
  1. ACTEMRA [Suspect]
     Indication: RHEUMATOID ARTHRITIS
     Dosage: 480 TOTAL MONTHLY DOSE
     Route: 065
     Dates: start: 20130607
  2. METHOTREXATE [Concomitant]
     Route: 048
  3. DICLOFENAC [Concomitant]
     Route: 048

REACTIONS (5)
  - Wound [Unknown]
  - Cellulitis [Recovering/Resolving]
  - Abscess limb [Unknown]
  - Laceration [Recovering/Resolving]
  - Limb injury [Recovering/Resolving]
